FAERS Safety Report 7437599-7 (Version None)
Quarter: 2011Q2

REPORT INFORMATION
  Report Type: 
  Country: None (occurrence: None)
  Receive Date: 20110426
  Receipt Date: 20110421
  Transmission Date: 20111010
  Serious: Yes (Hospitalization)
  Sender: FDA-Public Use
  Company Number: US-ABBOTT-11P-163-0721412-00

PATIENT
  Sex: Female
  Weight: 54.934 kg

DRUGS (2)
  1. HUMIRA [Suspect]
     Indication: RHEUMATOID ARTHRITIS
     Dates: end: 20090101
  2. HUMIRA [Suspect]
     Dates: start: 20110201, end: 20110401

REACTIONS (2)
  - WOUND [None]
  - VASCULAR GRAFT [None]
